FAERS Safety Report 5833344-7 (Version None)
Quarter: 2008Q3

REPORT INFORMATION
  Report Type: 
  Country: None (occurrence: None)
  Receive Date: 20080805
  Receipt Date: 20080723
  Transmission Date: 20090109
  Serious: Yes (Hospitalization)
  Sender: FDA-Public Use
  Company Number: GR-ELI_LILLY_AND_COMPANY-GR200805004436

PATIENT
  Age: 77 Year
  Sex: Male
  Weight: 65 kg

DRUGS (9)
  1. ALIMTA [Suspect]
     Indication: LUNG ADENOCARCINOMA
     Dosage: 500 MG/M2, UNK
     Route: 042
     Dates: start: 20080204
  2. FOLIC ACID [Concomitant]
     Dosage: UNK, UNKNOWN
     Route: 065
  3. VITAMIN B-12 [Concomitant]
     Dosage: UNK, UNKNOWN
     Route: 065
  4. CARBOPLATIN [Concomitant]
     Indication: NON-SMALL CELL LUNG CANCER
     Dosage: UNK, ONCE IN THIRD WEEK OF TREATMENT
     Route: 042
     Dates: start: 20080204
  5. SINTROM [Concomitant]
     Dosage: 0.5 D/F, DAILY (1/D)
     Route: 048
  6. DILTIAZEM HCL [Concomitant]
     Dosage: UNK UNK, 2/D
     Route: 048
  7. ANGORON [Concomitant]
     Dosage: UNK UNK, DAILY (1/D)
     Route: 048
  8. ZOCOR [Concomitant]
     Dosage: UNK UNK, DAILY (1/D)
     Route: 048
  9. OMEPRAZOLE [Concomitant]
     Dosage: UNK UNK, 2/D
     Route: 048

REACTIONS (2)
  - ANAEMIA [None]
  - THROMBOCYTOPENIA [None]
